FAERS Safety Report 18000472 (Version 1)
Quarter: 2020Q3

REPORT INFORMATION
  Report Type: Spontaneous
  Country: DE (occurrence: DE)
  Receive Date: 20200709
  Receipt Date: 20200709
  Transmission Date: 20201103
  Serious: Yes (Hospitalization, Other)
  Sender: FDA-Public Use
  Company Number: DE-TEVA-2020-DE-1798033

PATIENT
  Age: 48 Year
  Sex: Male
  Weight: 69 kg

DRUGS (3)
  1. FILGRASTIM [Suspect]
     Active Substance: FILGRASTIM
     Indication: ALLOGENIC STEM CELL TRANSPLANTATION
     Dosage: 300 MICROGRAM DAILY; 5/21/2020  0?0?1
     Route: 058
     Dates: start: 20200521
  2. FILGRASTIM [Suspect]
     Active Substance: FILGRASTIM
     Dosage: 600 MICROGRAM DAILY; MAY 22ND TO 24TH, 2020 1?0?1
     Route: 058
     Dates: start: 20200522, end: 20200524
  3. FILGRASTIM [Suspect]
     Active Substance: FILGRASTIM
     Dosage: 300 MICROGRAM DAILY; 25.05.2020 1?0?0
     Route: 058
     Dates: start: 20200525

REACTIONS (6)
  - Proteinuria [Recovering/Resolving]
  - Urinary sediment abnormal [Recovering/Resolving]
  - Glomerulonephritis [Recovering/Resolving]
  - Limb discomfort [Recovering/Resolving]
  - Erythema [Recovering/Resolving]
  - Acute kidney injury [Recovering/Resolving]

NARRATIVE: CASE EVENT DATE: 20200526
